FAERS Safety Report 19733953 (Version 2)
Quarter: 2021Q4

REPORT INFORMATION
  Report Type: Other
  Country: None (occurrence: US)
  Receive Date: 20210823
  Receipt Date: 20211030
  Transmission Date: 20220303
  Serious: Yes (Hospitalization, Other)
  Sender: FDA-Public Use
  Company Number: US-CHANGZHOU PHARMACEUTICAL FACTORY-2115476

PATIENT
  Age: 43 Year
  Sex: Female
  Weight: 57.7 kg

DRUGS (1)
  1. DOXYCYCLINE HYCLATE [Suspect]
     Active Substance: DOXYCYCLINE HYCLATE
     Indication: Acne
     Route: 065

REACTIONS (1)
  - Cholestatic liver injury [Recovered/Resolved]
